FAERS Safety Report 7726033-5 (Version None)
Quarter: 2011Q3

REPORT INFORMATION
  Report Type: 
  Country: None (occurrence: None)
  Receive Date: 20110902
  Receipt Date: 20110824
  Transmission Date: 20111222
  Serious: Yes (Hospitalization)
  Sender: FDA-Public Use
  Company Number: JP-ROCHE-789745

PATIENT
  Sex: Female
  Weight: 13 kg

DRUGS (6)
  1. SELBEX [Concomitant]
     Route: 053
     Dates: start: 20110531
  2. RHEUMATREX [Concomitant]
     Route: 048
     Dates: start: 20110101, end: 20110530
  3. IBRUPROFEN [Concomitant]
     Route: 048
     Dates: start: 20100801
  4. RHEUMATREX [Concomitant]
     Route: 048
     Dates: start: 20110531
  5. PREDNISOLONE [Concomitant]
     Route: 048
     Dates: start: 20110624
  6. ACTEMRA [Suspect]
     Route: 041
     Dates: start: 20110623

REACTIONS (4)
  - C-REACTIVE PROTEIN INCREASED [None]
  - GASTROENTERITIS [None]
  - BRONCHITIS [None]
  - ARTHRITIS [None]
